FAERS Safety Report 5291128-5 (Version None)
Quarter: 2007Q2

REPORT INFORMATION
  Report Type: 
  Country: None (occurrence: None)
  Receive Date: 20070402
  Receipt Date: 20070322
  Transmission Date: 20071010
  Serious: Yes (Hospitalization)
  Sender: FDA-Public Use
  Company Number: 2007SP005662

PATIENT
  Age: 60 Year
  Sex: Female
  Weight: 78 kg

DRUGS (4)
  1. TEMODAL [Suspect]
     Indication: GLIOBLASTOMA
     Dosage: ; PO
     Route: 048
     Dates: start: 20061101, end: 20061215
  2. TEMODAL [Suspect]
     Indication: GLIOBLASTOMA
     Dosage: ; PO
     Route: 048
     Dates: start: 20070215
  3. LASIX [Suspect]
     Indication: DRUG USE FOR UNKNOWN INDICATION
     Dosage: ; PO
     Route: 048
     Dates: start: 20061122, end: 20061219
  4. BACTRIM [Suspect]
     Indication: GLIOBLASTOMA
     Dosage: ; PO
     Route: 048
     Dates: start: 20061025, end: 20070121

REACTIONS (16)
  - ANAEMIA [None]
  - ANAL ULCER [None]
  - BLOOD IMMUNOGLOBULIN G INCREASED [None]
  - CHEILITIS [None]
  - CITROBACTER INFECTION [None]
  - DYSPHAGIA [None]
  - HERPES VIRUS INFECTION [None]
  - HYPOGAMMAGLOBULINAEMIA [None]
  - LEUKOPENIA [None]
  - LYMPHOPENIA [None]
  - MOUTH ULCERATION [None]
  - NO THERAPEUTIC RESPONSE [None]
  - ORAL CANDIDIASIS [None]
  - PALMAR ERYTHEMA [None]
  - STEVENS-JOHNSON SYNDROME [None]
  - TINEA VERSICOLOUR [None]
